FAERS Safety Report 4353032-6 (Version None)
Quarter: 2004Q2

REPORT INFORMATION
  Report Type: 
  Country: None (occurrence: None)
  Receive Date: 20040429
  Receipt Date: 20040420
  Transmission Date: 20050107
  Serious: Yes (Disabling)
  Sender: FDA-Public Use
  Company Number: OMPQ-UK-0404S-0251

PATIENT
  Sex: Female

DRUGS (1)
  1. OMNIPAQUE 70 [Suspect]
     Indication: OVARIAN CANCER
     Dosage: SINGLE DOSE

REACTIONS (4)
  - DIARRHOEA [None]
  - INJECTED LIMB MOBILITY DECREASED [None]
  - JOINT STIFFNESS [None]
  - PYREXIA [None]
